FAERS Safety Report 4511374-5 (Version None)
Quarter: 2004Q4

REPORT INFORMATION
  Report Type: 
  Country: None (occurrence: None)
  Receive Date: 20041129
  Receipt Date: 20041012
  Transmission Date: 20050328
  Serious: Yes (Death)
  Sender: FDA-Public Use
  Company Number: FR-BRISTOL-MYERS SQUIBB COMPANY-12729687

PATIENT
  Age: 90 Year
  Sex: Female

DRUGS (9)
  1. COUMADIN [Suspect]
     Dosage: 2 MG ON EVEN DATES, 1 MG ON ODD DATES
     Route: 048
     Dates: end: 20040710
  2. PRAVASTATIN [Interacting]
     Route: 048
     Dates: end: 20040710
  3. CORDARONE [Interacting]
     Dosage: 1 DAILY EXCEPT WEDNESDAY AND SUNDAY
     Route: 048
     Dates: end: 20040710
  4. SEROPRAM [Interacting]
     Dosage: 20 MG - 1/2 (10 MG) X 2/D
     Dates: end: 20040710
  5. BETAHISTINE [Concomitant]
     Dates: end: 20040710
  6. RIVOTRIL [Concomitant]
     Dates: end: 20040710
  7. COVERSYL [Concomitant]
  8. HEMIGOXINE NATIVELLE [Concomitant]
     Dosage: 1 DAILY ON EVEN DATES
  9. MOPRAL [Concomitant]
     Dosage: ONE DOSE EVERY 2 DAYS

REACTIONS (14)
  - BRAIN SCAN ABNORMAL [None]
  - COGNITIVE DISORDER [None]
  - COMA [None]
  - CONFUSIONAL STATE [None]
  - DRUG INTERACTION [None]
  - EXTRAPYRAMIDAL DISORDER [None]
  - HAEMATOMA [None]
  - HEMIPLEGIA [None]
  - INTERNATIONAL NORMALISED RATIO INCREASED [None]
  - LIMB INJURY [None]
  - MYDRIASIS [None]
  - SUBDURAL HAEMATOMA [None]
  - VERTIGO [None]
  - WOUND [None]
